FAERS Safety Report 9330143 (Version 6)
Quarter: 2013Q3

REPORT INFORMATION
  Report Type: Spontaneous
  Country: US (occurrence: US)
  Receive Date: 20130604
  Receipt Date: 20130822
  Transmission Date: 20140515
  Serious: Yes (Death, Hospitalization)
  Sender: FDA-Public Use
  Company Number: US-CELGENEUS-163-21880-13053411

PATIENT
  Age: 57 Year
  Sex: Male
  Weight: 24.09 kg

DRUGS (3)
  1. REVLIMID [Suspect]
     Indication: PLASMA CELL MYELOMA RECURRENT
     Dosage: 25 MILLIGRAM
     Route: 048
     Dates: start: 20130507, end: 20130519
  2. DEXAMETHASONE [Suspect]
     Indication: PLASMA CELL MYELOMA RECURRENT
     Route: 048
     Dates: start: 20130415, end: 2013
  3. MLN9708 [Suspect]
     Indication: PLASMA CELL MYELOMA RECURRENT
     Route: 048
     Dates: start: 20130507, end: 20130514

REACTIONS (4)
  - Renal failure acute [Fatal]
  - Plasma cell myeloma [Fatal]
  - Respiratory failure [Fatal]
  - Myocardial infarction [Fatal]
